FAERS Safety Report 7228992-6 (Version None)
Quarter: 2011Q1

REPORT INFORMATION
  Report Type: 
  Country: None (occurrence: None)
  Receive Date: 20110117
  Receipt Date: 20110103
  Transmission Date: 20110831
  Serious: Yes (Other)
  Sender: FDA-Public Use
  Company Number: PHHY2010SI79318

PATIENT
  Sex: Male

DRUGS (7)
  1. CASODEX [Concomitant]
     Dosage: 50 MG, QD
     Route: 048
     Dates: start: 20080101
  2. OMNIC [Concomitant]
     Dosage: 1 TABLET
     Route: 048
     Dates: start: 20080101
  3. ZOLEDRONATE [Suspect]
     Indication: PROPHYLAXIS
     Dosage: 4MG/5ML/28DAYS
     Route: 042
     Dates: start: 20070829
  4. TRIPTORELIN [Concomitant]
     Dosage: ONCE IN 3 MONTH
     Route: 030
     Dates: start: 20080101
  5. TELMISARTAN [Concomitant]
     Dosage: 1 TABLET
     Route: 048
     Dates: start: 20080101
  6. ATORIS (ATORVASTATIN) [Concomitant]
     Dosage: UNK
     Route: 048
     Dates: start: 20080101
  7. ASPIRIN [Concomitant]
     Dosage: 100 MG, UNK
     Route: 048
     Dates: start: 20080101

REACTIONS (2)
  - URINARY TRACT DISORDER [None]
  - PANCREATITIS [None]
